FAERS Safety Report 5096394-7 (Version None)
Quarter: 2006Q3

REPORT INFORMATION
  Report Type: 
  Country: None (occurrence: None)
  Receive Date: 20060830
  Receipt Date: 20060818
  Transmission Date: 20061208
  Serious: Yes (Death)
  Sender: FDA-Public Use
  Company Number: RU200607003477

PATIENT
  Age: 73 Year
  Sex: Male
  Weight: 67 kg

DRUGS (5)
  1. OLANZAPINE [Suspect]
     Indication: SCHIZOPHRENIA, PARANOID TYPE
     Dosage: 10  MG, 2/D, ORAL
     Route: 048
     Dates: start: 20060627
  2. HALOPERIDOL [Concomitant]
  3. CHLOPROMAZINE (CHLORPROMAZINE) [Concomitant]
  4. CLOZAPINE [Concomitant]
  5. TRIFLUOPERAZINE HCL [Concomitant]

REACTIONS (1)
  - COMPLETED SUICIDE [None]
